FAERS Safety Report 5290160-5 (Version None)
Quarter: 2007Q1

REPORT INFORMATION
  Report Type: 
  Country: None (occurrence: None)
  Receive Date: 20070330
  Receipt Date: 20070314
  Transmission Date: 20070707
  Serious: Yes (Hospitalization)
  Sender: FDA-Public Use
  Company Number: B0414380A

PATIENT
  Age: 48 Year
  Sex: Female

DRUGS (4)
  1. PAXIL [Suspect]
     Indication: DEPRESSION
     Dosage: 20 MG/PER DAY/ORAL
     Route: 048
     Dates: start: 20050801, end: 20051202
  2. CITALOPRAM HYDROBROMIDE [Suspect]
     Indication: DEPRESSION
     Dosage: 20 MG/PER DAY/ORAL
     Route: 048
     Dates: start: 20051203, end: 20051215
  3. BUPROPION HYDROCHLORIDE [Concomitant]
  4. SERTRALINE [Concomitant]

REACTIONS (3)
  - COGWHEEL RIGIDITY [None]
  - CROSS SENSITIVITY REACTION [None]
  - RESTLESS LEGS SYNDROME [None]
